FAERS Safety Report 4306958-3 (Version None)
Quarter: 2004Q1

REPORT INFORMATION
  Report Type: 
  Country: None (occurrence: None)
  Receive Date: 20040225
  Receipt Date: 20040212
  Transmission Date: 20041129
  Serious: Yes (Hospitalization)
  Sender: FDA-Public Use
  Company Number: 200305940

PATIENT
  Age: 49 Year
  Sex: Male

DRUGS (4)
  1. IMODIUM [Suspect]
     Indication: DIARRHOEA
     Dosage: MORE THAN 20 MG DAILY PO
     Route: 048
     Dates: start: 20030401, end: 20030701
  2. DILTIAZEM [Concomitant]
  3. LESCOL [Concomitant]
  4. KARDEGIC (LYSINE ACETYLSALICYTE) [Concomitant]

REACTIONS (8)
  - ABDOMINAL DISTENSION [None]
  - ABDOMINAL PAIN [None]
  - CONSTIPATION [None]
  - DIARRHOEA [None]
  - ENTEROCOLITIS INFECTIOUS [None]
  - FLATULENCE [None]
  - INTESTINAL HYPOMOTILITY [None]
  - OVERDOSE [None]
